FAERS Safety Report 17413025 (Version 1)
Quarter: 2020Q1

REPORT INFORMATION
  Report Type: Spontaneous
  Country: TH (occurrence: TH)
  Receive Date: 20200213
  Receipt Date: 20200213
  Transmission Date: 20200409
  Serious: Yes (Other)
  Sender: FDA-Public Use
  Company Number: TH-CHEPLA-C20200585_03

PATIENT

DRUGS (1)
  1. GANCICLOVIR. [Suspect]
     Active Substance: GANCICLOVIR
     Indication: CYTOMEGALOVIRUS GASTROENTERITIS
     Dosage: 6 WEEKS; UNK
     Route: 065

REACTIONS (1)
  - Cytomegalovirus gastroenteritis [Unknown]
